FAERS Safety Report 10153874 (Version 1)
Quarter: 2014Q2

REPORT INFORMATION
  Report Type: Spontaneous
  Country: CA (occurrence: CA)
  Receive Date: 20140506
  Receipt Date: 20140506
  Transmission Date: 20141212
  Serious: Yes (Other)
  Sender: FDA-Public Use
  Company Number: CA-ROCHE-1389067

PATIENT
  Age: 57 Year
  Sex: Female

DRUGS (9)
  1. XELODA [Suspect]
     Indication: PRODUCT USED FOR UNKNOWN INDICATION
     Route: 065
  2. TYKERB [Suspect]
     Indication: PRODUCT USED FOR UNKNOWN INDICATION
     Route: 065
  3. TYKERB [Suspect]
     Dosage: THERAPY DURATION:  421.0 DAY(S)
     Route: 048
  4. LETROZOLE [Suspect]
     Indication: PRODUCT USED FOR UNKNOWN INDICATION
     Route: 065
  5. ATIVAN [Concomitant]
  6. COUMADIN [Concomitant]
     Route: 065
  7. DILTIAZEM [Concomitant]
  8. NEXIUM [Concomitant]
  9. STATEX (MORPHINE SULFATE) [Concomitant]

REACTIONS (3)
  - Blood test abnormal [Not Recovered/Not Resolved]
  - Breast cancer metastatic [Not Recovered/Not Resolved]
  - Malignant neoplasm progression [Not Recovered/Not Resolved]
